FAERS Safety Report 24858732 (Version 1)
Quarter: 2025Q1

REPORT INFORMATION
  Report Type: Spontaneous
  Country: BR (occurrence: BR)
  Receive Date: 20250118
  Receipt Date: 20250118
  Transmission Date: 20250408
  Serious: Yes (Hospitalization, Other)
  Sender: NATCO PHARMA
  Company Number: BR-NATCO-000028

PATIENT
  Age: 62 Year
  Sex: Female

DRUGS (3)
  1. TRASTUZUMAB [Suspect]
     Active Substance: TRASTUZUMAB
     Indication: HER2 positive breast cancer
     Route: 042
  2. DOCETAXEL [Suspect]
     Active Substance: DOCETAXEL
     Indication: HER2 positive breast cancer
     Route: 042
  3. CARBOPLATIN [Suspect]
     Active Substance: CARBOPLATIN
     Indication: HER2 positive breast cancer
     Route: 042

REACTIONS (5)
  - Osteonecrosis of jaw [Recovered/Resolved]
  - Oesophageal candidiasis [Unknown]
  - Myelosuppression [Unknown]
  - Thrombocytopenia [Unknown]
  - Hypokalaemia [Unknown]
